FAERS Safety Report 6696221-8 (Version None)
Quarter: 2010Q2

REPORT INFORMATION
  Report Type: 
  Country: None (occurrence: None)
  Receive Date: 20100426
  Receipt Date: 20100415
  Transmission Date: 20101027
  Serious: Yes (Other)
  Sender: FDA-Public Use
  Company Number: US-AMGEN-TCS400186

PATIENT
  Sex: Female

DRUGS (1)
  1. ENBREL [Suspect]
     Indication: RHEUMATOID ARTHRITIS
     Route: 058
     Dates: start: 20000101

REACTIONS (5)
  - DRUG INEFFECTIVE [None]
  - JOINT DESTRUCTION [None]
  - JOINT EFFUSION [None]
  - RHEUMATOID ARTHRITIS [None]
  - UTERINE PROLAPSE [None]
